FAERS Safety Report 4359265-7 (Version None)
Quarter: 2004Q2

REPORT INFORMATION
  Report Type: 
  Country: None (occurrence: None)
  Receive Date: 20040512
  Receipt Date: 20040423
  Transmission Date: 20050107
  Serious: Yes (Other)
  Sender: FDA-Public Use
  Company Number: US_010464511

PATIENT
  Age: 70 Year
  Sex: Male
  Weight: 77 kg

DRUGS (9)
  1. HUMALOG [Suspect]
     Indication: DIABETES MELLITUS
     Dates: start: 19980101
  2. HUMULIN N [Suspect]
     Indication: DIABETES MELLITUS
     Dosage: 15 U/DAY
     Dates: start: 19980101
  3. REGULAR INSULIN [Suspect]
     Indication: DIABETES MELLITUS
     Dates: end: 19980101
  4. ILETIN-INSULIN-ANIMAL (UNKNOWN FORMULATION) (INSULI [Suspect]
     Indication: DIABETES MELLITUS
  5. ZOCOR [Concomitant]
  6. PLAVIX [Concomitant]
  7. CELEXA [Concomitant]
  8. VIOXX [Concomitant]
  9. LEVOXYL [Concomitant]

REACTIONS (6)
  - ARTERIAL STENOSIS [None]
  - ARTHRITIS [None]
  - BLOOD GLUCOSE DECREASED [None]
  - BLOOD GLUCOSE INCREASED [None]
  - HYPOACUSIS [None]
  - PSYCHOMOTOR HYPERACTIVITY [None]
